FAERS Safety Report 7214848-1 (Version None)
Quarter: 2011Q1

REPORT INFORMATION
  Report Type: 
  Country: None (occurrence: None)
  Receive Date: 20110107
  Receipt Date: 20100405
  Transmission Date: 20110831
  Serious: No
  Sender: FDA-Public Use
  Company Number: A0853503A

PATIENT
  Age: 68 Year
  Sex: Female

DRUGS (4)
  1. NEXIUM [Concomitant]
  2. LOVAZA [Suspect]
     Dosage: 2G TWICE PER DAY
     Route: 048
     Dates: start: 20081201, end: 20091201
  3. LIPITOR [Concomitant]
  4. OSCAL 500 + D [Concomitant]

REACTIONS (2)
  - SKIN ODOUR ABNORMAL [None]
  - URINE ODOUR ABNORMAL [None]
